FAERS Safety Report 10018691 (Version 2)
Quarter: 2014Q2

REPORT INFORMATION
  Report Type: Spontaneous
  Country: IT (occurrence: IT)
  Receive Date: 20140318
  Receipt Date: 20140515
  Transmission Date: 20141212
  Serious: Yes (Other)
  Sender: FDA-Public Use
  Company Number: IT-ABBVIE-14P-083-1213155-00

PATIENT
  Age: 80 Year
  Sex: Female

DRUGS (1)
  1. KLACID [Suspect]
     Indication: ULCER
     Route: 048
     Dates: start: 20140220, end: 20140221

REACTIONS (1)
  - Oedema genital [Recovering/Resolving]
